FAERS Safety Report 5843103-7 (Version None)
Quarter: 2008Q3

REPORT INFORMATION
  Report Type: 
  Country: None (occurrence: None)
  Receive Date: 20080812
  Receipt Date: 20080812
  Transmission Date: 20090109
  Serious: Yes (Hospitalization)
  Sender: FDA-Public Use
  Company Number: None

PATIENT
  Age: 15 Year
  Sex: Male
  Weight: 53 kg

DRUGS (2)
  1. ABILIFY [Suspect]
     Indication: HALLUCINATION, VISUAL
     Dosage: 2 MG DAILY PO
     Route: 048
     Dates: start: 20080629, end: 20080721
  2. ABILIFY [Suspect]
     Indication: SCHIZOPHRENIA
     Dosage: 2 MG DAILY PO
     Route: 048
     Dates: start: 20080629, end: 20080721

REACTIONS (1)
  - THROMBOTIC THROMBOCYTOPENIC PURPURA [None]
